FAERS Safety Report 4278085-5 (Version None)
Quarter: 2004Q1

REPORT INFORMATION
  Report Type: 
  Country: None (occurrence: None)
  Receive Date: 20040122
  Receipt Date: 20040122
  Transmission Date: 20041129
  Serious: Yes (Death)
  Sender: FDA-Public Use
  Company Number: None

PATIENT
  Age: 59 Year
  Sex: Male
  Weight: 73.4 kg

DRUGS (2)
  1. CARBOPLATIN [Suspect]
     Indication: NON-SMALL CELL LUNG CANCER METASTATIC
     Dosage: AUC=2.5 PER IV DAY 1 Q 21 DAYS
     Route: 042
     Dates: start: 20031118, end: 20031230
  2. GEMZAR [Suspect]
     Indication: NON-SMALL CELL LUNG CANCER METASTATIC
     Dosage: 500 MG/M2 PER IV D1 AND 8 Q 21 DAYS
     Route: 042
     Dates: start: 20031118, end: 20031230

REACTIONS (6)
  - ANAEMIA [None]
  - CARDIAC ARREST [None]
  - CORONARY ARTERY DISEASE [None]
  - LEUKOPENIA [None]
  - NEUTROPENIA [None]
  - PLATELET COUNT ABNORMAL [None]
